FAERS Safety Report 17004586 (Version 1)
Quarter: 2019Q4

REPORT INFORMATION
  Report Type: Spontaneous
  Country: FR (occurrence: FR)
  Receive Date: 20191107
  Receipt Date: 20191107
  Transmission Date: 20200122
  Serious: Yes (Hospitalization)
  Sender: FDA-Public Use
  Company Number: FR-MYLANLABS-2019M1105941

PATIENT
  Age: 25 Year
  Sex: Female

DRUGS (11)
  1. VALPROATE [Concomitant]
     Active Substance: VALPROIC ACID
     Indication: MANIA
     Route: 065
  2. HYDROXYCHLOROQUINE [Suspect]
     Active Substance: HYDROXYCHLOROQUINE
     Indication: SYSTEMIC LUPUS ERYTHEMATOSUS
     Route: 048
  3. AMISULPRIDE [Suspect]
     Active Substance: AMISULPRIDE
     Indication: PSYCHOTIC DISORDER
     Route: 065
  4. DIAZEPAM. [Concomitant]
     Active Substance: DIAZEPAM
     Indication: PSYCHOMOTOR HYPERACTIVITY
     Dosage: SINGLE INTRAMUSCULAR ADMINISTRATION OF DIAZEPAM
     Route: 030
  5. DIAZEPAM. [Concomitant]
     Active Substance: DIAZEPAM
     Indication: AGGRESSION
  6. METHYLPREDNISOLONE. [Suspect]
     Active Substance: METHYLPREDNISOLONE
     Indication: SYSTEMIC LUPUS ERYTHEMATOSUS
     Dosage: 500 MILLIGRAM
     Route: 042
  7. PREDNISOLONE. [Suspect]
     Active Substance: PREDNISOLONE
     Indication: SYSTEMIC LUPUS ERYTHEMATOSUS
     Dosage: STARTING DOSE
     Route: 048
  8. LOXAPINE. [Suspect]
     Active Substance: LOXAPINE
     Indication: AGGRESSION
  9. CYCLOPHOSPHAMIDE. [Suspect]
     Active Substance: CYCLOPHOSPHAMIDE
     Indication: SYSTEMIC LUPUS ERYTHEMATOSUS
     Route: 065
  10. LOXAPINE. [Suspect]
     Active Substance: LOXAPINE
     Indication: PSYCHOMOTOR HYPERACTIVITY
     Dosage: SINGLE INTRAMUSCULAR ADMINISTRATION OF LOXAPINE
     Route: 030
  11. TROPATEPINE [Concomitant]
     Active Substance: TROPATEPINE
     Indication: EXTRAPYRAMIDAL DISORDER
     Dosage: 10 MILLIGRAM
     Route: 048

REACTIONS (2)
  - Drug ineffective [Unknown]
  - Catatonia [Recovered/Resolved]
